FAERS Safety Report 22601070 (Version 1)
Quarter: 2023Q2

REPORT INFORMATION
  Report Type: Spontaneous
  Country: AU (occurrence: AU)
  Receive Date: 20230614
  Receipt Date: 20230614
  Transmission Date: 20230721
  Serious: Yes (Life-Threatening, Hospitalization)
  Sender: FDA-Public Use
  Company Number: AU-MYLANLABS-2023M1062635

PATIENT
  Age: 84 Year
  Sex: Male

DRUGS (3)
  1. EPINEPHRINE [Suspect]
     Active Substance: EPINEPHRINE
     Indication: Nodal arrhythmia
     Dosage: UNK, INFUSION
     Route: 065
  2. EPINEPHRINE [Suspect]
     Active Substance: EPINEPHRINE
     Indication: Haemodynamic instability
  3. ATROPINE [Suspect]
     Active Substance: ATROPINE
     Indication: Nodal arrhythmia
     Dosage: UNK, BOLUSES
     Route: 065

REACTIONS (1)
  - Drug ineffective [Unknown]
